FAERS Safety Report 6085844-5 (Version None)
Quarter: 2009Q1

REPORT INFORMATION
  Report Type: 
  Country: None (occurrence: None)
  Receive Date: 20090220
  Receipt Date: 20090210
  Transmission Date: 20090719
  Serious: Yes (Life-Threatening, Hospitalization, Other)
  Sender: FDA-Public Use
  Company Number: B0546726A

PATIENT
  Age: 69 Year
  Sex: Female
  Weight: 54 kg

DRUGS (7)
  1. ARIXTRA [Suspect]
     Indication: PULMONARY EMBOLISM
     Dosage: 7.5MG PER DAY
     Route: 058
     Dates: start: 20080611, end: 20080716
  2. SOLUPRED [Concomitant]
     Indication: PAIN
     Dosage: 40MG TWICE PER DAY
     Route: 048
     Dates: start: 20080715, end: 20080729
  3. TRANXENE [Concomitant]
     Indication: ANXIETY
     Dosage: 5MG TWICE PER DAY
     Route: 048
  4. TAHOR [Concomitant]
     Dosage: 40MG PER DAY
     Route: 048
  5. NEXIUM [Concomitant]
     Indication: PROPHYLAXIS
     Dosage: 20MG PER DAY
     Route: 048
  6. CACIT D3 [Concomitant]
     Indication: ADVERSE DRUG REACTION
     Route: 048
  7. TRAMADOL HCL [Concomitant]
     Indication: PAIN
     Dosage: 100MG THREE TIMES PER DAY
     Route: 048

REACTIONS (6)
  - ARTHRITIS BACTERIAL [None]
  - DEEP VEIN THROMBOSIS [None]
  - ESCHERICHIA INFECTION [None]
  - HAEMATOMA [None]
  - INCORRECT DRUG ADMINISTRATION DURATION [None]
  - SEPTIC SHOCK [None]
